FAERS Safety Report 25516700 (Version 2)
Quarter: 2025Q3

REPORT INFORMATION
  Report Type: Spontaneous
  Country: EU (occurrence: EU)
  Receive Date: 20250704
  Receipt Date: 20250710
  Transmission Date: 20251020
  Serious: Yes (Hospitalization, Other)
  Sender: AUROBINDO
  Company Number: EU-ATRAL-20250110

PATIENT
  Age: 86 Year
  Sex: Male

DRUGS (1)
  1. AMOXICILLIN [Suspect]
     Active Substance: AMOXICILLIN
     Indication: Aerococcus urinae infection
     Route: 048

REACTIONS (1)
  - Tubulointerstitial nephritis [Recovered/Resolved]
